FAERS Safety Report 10032948 (Version 3)
Quarter: 2014Q2

REPORT INFORMATION
  Report Type: Spontaneous
  Country: RU (occurrence: RU)
  Receive Date: 20140324
  Receipt Date: 20140404
  Transmission Date: 20141212
  Serious: Yes (Other)
  Sender: FDA-Public Use
  Company Number: RU-PFIZER INC-2014079634

PATIENT
  Age: 60 Year
  Sex: Female

DRUGS (3)
  1. LIPRIMAR [Suspect]
     Indication: HYPERLIPIDAEMIA
     Dosage: 20 MG, DAILY
     Route: 048
     Dates: start: 201309, end: 201309
  2. LIPRIMAR [Suspect]
     Indication: BLOOD CHOLESTEROL INCREASED
  3. ASPIRINE [Concomitant]
     Dosage: UNK

REACTIONS (4)
  - Face oedema [Recovered/Resolved]
  - Tongue oedema [Recovered/Resolved]
  - Eye oedema [Recovered/Resolved]
  - Lip oedema [Recovered/Resolved]
